FAERS Safety Report 8860744 (Version 1)
Quarter: 2012Q4

REPORT INFORMATION
  Report Type: 
  Country: US (occurrence: US)
  Receive Date: 20121025
  Receipt Date: 20121025
  Transmission Date: 20130627
  Serious: Yes (Hospitalization)
  Sender: FDA-Public Use
  Company Number: PHHY2012US094410

PATIENT
  Age: 86 Year
  Sex: Female

DRUGS (6)
  1. BUFFERIN REGULAR STRENGTH [Suspect]
     Indication: BACK PAIN
     Dosage: 1 to 2 DF daily
     Route: 048
  2. BUFFERIN REGULAR STRENGTH [Suspect]
     Indication: ARTHRALGIA
  3. BUFFERIN REGULAR STRENGTH [Suspect]
     Indication: ARTHRALGIA
  4. EXCEDRIN [Concomitant]
     Indication: ARTHRALGIA
     Dates: start: 2010
  5. EXCEDRIN [Concomitant]
     Indication: BACK PAIN
  6. EXCEDRIN [Concomitant]
     Indication: ARTHRALGIA

REACTIONS (2)
  - Cardiac failure congestive [Not Recovered/Not Resolved]
  - Incorrect drug administration duration [Unknown]
